FAERS Safety Report 17443686 (Version 1)
Quarter: 2020Q1

REPORT INFORMATION
  Report Type: Spontaneous
  Country: US (occurrence: US)
  Receive Date: 20200220
  Receipt Date: 20200220
  Transmission Date: 20200409
  Serious: Yes (Other)
  Sender: FDA-Public Use
  Company Number: None

PATIENT
  Age: 46 Year
  Sex: Male
  Weight: 50.35 kg

DRUGS (4)
  1. LORAZEPAM 1MG TID [Concomitant]
  2. POLYTHYLENE GLYCOL 17GM BID [Concomitant]
  3. AMITRIPTYLINE [Suspect]
     Active Substance: AMITRIPTYLINE
     Indication: IMPULSE-CONTROL DISORDER
     Route: 048
  4. PANTOPRAZOLE 40MG BID [Concomitant]

REACTIONS (1)
  - Electrocardiogram QT prolonged [None]

NARRATIVE: CASE EVENT DATE: 20200207
